FAERS Safety Report 9034958 (Version 1)
Quarter: 2013Q1

REPORT INFORMATION
  Report Type: Spontaneous
  Country: CN (occurrence: None)
  Receive Date: 20130118
  Receipt Date: 20130118
  Transmission Date: 20140127
  Serious: Yes (Other)
  Sender: FDA-Public Use
  Company Number: VAL_01277_2013

PATIENT
  Age: 49 Year
  Sex: Female
  Weight: 56 kg

DRUGS (3)
  1. BETALOC [Suspect]
     Indication: PRODUCT USED FOR UNKNOWN INDICATION
     Dosage: 0.5 TABLET
  2. MIACALCIC [Suspect]
     Indication: ARRHYTHMIA
     Dates: start: 20081127, end: 20081127
  3. MIACALCIC [Suspect]
     Indication: PATHOLOGICAL FRACTURE
     Dates: start: 20081127, end: 20081127

REACTIONS (8)
  - Palpitations [None]
  - Fatigue [None]
  - Pallor [None]
  - Cyanosis [None]
  - Chest discomfort [None]
  - Apparent death [None]
  - Vomiting [None]
  - Anaphylactoid reaction [None]
